FAERS Safety Report 6667719-3 (Version None)
Quarter: 2010Q2

REPORT INFORMATION
  Report Type: 
  Country: None (occurrence: None)
  Receive Date: 20100405
  Receipt Date: 20100326
  Transmission Date: 20101027
  Serious: No
  Sender: FDA-Public Use
  Company Number: US-CEPHALON-2010001926

PATIENT
  Sex: Female

DRUGS (5)
  1. FENTORA [Suspect]
     Indication: CERVIX CARCINOMA
     Route: 002
  2. FENTORA [Suspect]
     Indication: BACK PAIN
  3. FENTORA [Suspect]
     Indication: NEUROPATHY PERIPHERAL
  4. OXYCODONE [Concomitant]
  5. OXYCODONE [Concomitant]

REACTIONS (1)
  - DRUG PRESCRIBING ERROR [None]
